FAERS Safety Report 7784288-5 (Version None)
Quarter: 2011Q3

REPORT INFORMATION
  Report Type: 
  Country: None (occurrence: None)
  Receive Date: 20110928
  Receipt Date: 20110919
  Transmission Date: 20111222
  Serious: Yes (Hospitalization)
  Sender: FDA-Public Use
  Company Number: FR-CEPHALON-2011004729

PATIENT
  Sex: Female
  Weight: 54 kg

DRUGS (5)
  1. CHLORAMBUCIL [Suspect]
     Route: 048
     Dates: start: 20110830
  2. RITUXIMAB [Suspect]
     Route: 042
     Dates: start: 20110830, end: 20110830
  3. VALACYCLOVIR HYDROCHLORIDE [Concomitant]
     Dates: start: 20110101
  4. ATARAX [Concomitant]
     Dates: start: 20110101
  5. TREANDA [Suspect]
     Route: 042

REACTIONS (1)
  - SKIN TOXICITY [None]
